FAERS Safety Report 15609704 (Version 2)
Quarter: 2018Q4

REPORT INFORMATION
  Report Type: Report from Study
  Country: None (occurrence: DE)
  Receive Date: 20181113
  Receipt Date: 20181120
  Transmission Date: 20190205
  Serious: Yes (Hospitalization)
  Sender: FDA-Public Use
  Company Number: DE-ABBVIE-18S-062-2549886-00

PATIENT
  Sex: Male
  Weight: 88 kg

DRUGS (11)
  1. MACROGOL [Concomitant]
     Active Substance: POLYETHYLENE GLYCOLS
     Indication: PRODUCT USED FOR UNKNOWN INDICATION
     Dosage: AS NEEDED
     Route: 065
  2. ASPIRIN. [Concomitant]
     Active Substance: ASPIRIN
     Indication: PRODUCT USED FOR UNKNOWN INDICATION
     Route: 065
  3. DEKRISTOL [Concomitant]
     Active Substance: CHOLECALCIFEROL
     Indication: PRODUCT USED FOR UNKNOWN INDICATION
     Route: 065
  4. LEVODOPA DEPOT [Concomitant]
     Indication: PRODUCT USED FOR UNKNOWN INDICATION
     Route: 065
  5. SIMVASTATIN. [Concomitant]
     Active Substance: SIMVASTATIN
     Indication: BLOOD CHOLESTEROL DECREASED
     Route: 065
  6. PANTOPRAZOL [Concomitant]
     Active Substance: PANTOPRAZOLE SODIUM
     Indication: PROPHYLAXIS
     Route: 065
  7. DUODOPA [Suspect]
     Active Substance: CARBIDOPA\LEVODOPA
     Indication: PARKINSON^S DISEASE
     Dosage: MD 10.0ML / 4.5ML/H / ED 1.5ML
     Route: 050
     Dates: start: 20180802, end: 2018
  8. DUODOPA [Suspect]
     Active Substance: CARBIDOPA\LEVODOPA
     Dosage: 100ML/D FROM 6A.M. TO 10P.M.
     Route: 050
     Dates: start: 2018
  9. METOPROLOL. [Concomitant]
     Active Substance: METOPROLOL
     Indication: PRODUCT USED FOR UNKNOWN INDICATION
     Route: 065
  10. OLMESARTAN [Concomitant]
     Active Substance: OLMESARTAN
     Indication: PRODUCT USED FOR UNKNOWN INDICATION
     Route: 065
  11. BELOC ZOK [Concomitant]
     Active Substance: METOPROLOL SUCCINATE
     Indication: HYPERTENSION
     Route: 065

REACTIONS (19)
  - Arthralgia [Unknown]
  - Oedema peripheral [Unknown]
  - Left ventricular failure [Unknown]
  - Cardio-respiratory arrest [Unknown]
  - Atrioventricular block first degree [Unknown]
  - Initial insomnia [Unknown]
  - Tricuspid valve incompetence [Unknown]
  - Fatigue [Unknown]
  - Supraventricular tachycardia [Unknown]
  - Pulmonary oedema [Unknown]
  - Restrictive cardiomyopathy [Recovered/Resolved with Sequelae]
  - Fine motor skill dysfunction [Unknown]
  - Stoma site pain [Unknown]
  - Tachycardia [Unknown]
  - Mitral valve incompetence [Unknown]
  - Dyspnoea exertional [Not Recovered/Not Resolved]
  - Asthenia [Unknown]
  - Night sweats [Unknown]
  - Pleural effusion [Unknown]

NARRATIVE: CASE EVENT DATE: 2018
